FAERS Safety Report 4312622-7 (Version None)
Quarter: 2004Q1

REPORT INFORMATION
  Report Type: 
  Country: None (occurrence: None)
  Receive Date: 20040305
  Receipt Date: 20040301
  Transmission Date: 20041129
  Serious: Yes (Other)
  Sender: FDA-Public Use
  Company Number: WAES 0403GBR00034

PATIENT
  Age: 35 Year
  Sex: Male
  Weight: 76 kg

DRUGS (1)
  1. PROSCAR [Suspect]
     Indication: ALOPECIA
     Route: 048
     Dates: start: 20020416, end: 20020816

REACTIONS (2)
  - ATRIAL FIBRILLATION [None]
  - PALPITATIONS [None]
